FAERS Safety Report 14101816 (Version 1)
Quarter: 2017Q4

REPORT INFORMATION
  Report Type: Report from Study
  Country: CA (occurrence: CA)
  Receive Date: 20171018
  Receipt Date: 20171018
  Transmission Date: 20180321
  Serious: Yes (Disabling)
  Sender: FDA-Public Use
  Company Number: CA-AMGEN-CANSL2017144343

PATIENT
  Age: 47 Year
  Sex: Female
  Weight: 100 kg

DRUGS (3)
  1. KYPROLIS [Suspect]
     Active Substance: CARFILZOMIB
     Dosage: 56 MG, ON DAY 1, 2, 8, 9, 15 AND 16 SECOND CYCLE, OD X2X3WEEKS
     Route: 042
     Dates: start: 20170809, end: 2017
  2. KYPROLIS [Suspect]
     Active Substance: CARFILZOMIB
     Dosage: 56 MG, ON DAY 1, 2, 8, 9, 15 AND 16 THIRD CYCLE, OD X2X3WEEKS
     Route: 042
     Dates: start: 2017
  3. KYPROLIS [Suspect]
     Active Substance: CARFILZOMIB
     Indication: PLASMA CELL MYELOMA
     Dosage: 56 MG, OD X2X3WEEKS
     Route: 042
     Dates: start: 201701, end: 2017

REACTIONS (4)
  - Bone pain [Recovered/Resolved]
  - Swelling [Recovered/Resolved]
  - Muscle spasms [Not Recovered/Not Resolved]
  - Hypotension [Recovered/Resolved]

NARRATIVE: CASE EVENT DATE: 20170915
